FAERS Safety Report 6878309-1 (Version None)
Quarter: 2010Q3

REPORT INFORMATION
  Report Type: 
  Country: None (occurrence: None)
  Receive Date: 20100728
  Receipt Date: 20100719
  Transmission Date: 20110219
  Serious: Yes (Hospitalization)
  Sender: FDA-Public Use
  Company Number: FR-PFIZER INC-2010089561

PATIENT
  Age: 56 Year
  Sex: Female

DRUGS (5)
  1. TAHOR [Suspect]
     Dosage: UNK
     Dates: start: 20010101
  2. COUMADIN [Suspect]
     Dosage: UNK
     Route: 048
     Dates: start: 20011001, end: 20090713
  3. KARDEGIC [Suspect]
     Dosage: UNK
     Route: 048
     Dates: start: 20011001, end: 20090713
  4. RAMIPRIL [Suspect]
     Dosage: UNK
     Dates: start: 20010101
  5. PANTOPRAZOLE SODIUM [Suspect]
     Dosage: UNK
     Dates: start: 20010101

REACTIONS (2)
  - CEREBRAL HAEMATOMA [None]
  - EPILEPSY [None]
